FAERS Safety Report 17058154 (Version 2)
Quarter: 2020Q1

REPORT INFORMATION
  Report Type: Spontaneous
  Country: CN (occurrence: CN)
  Receive Date: 20191121
  Receipt Date: 20200102
  Transmission Date: 20200409
  Serious: Yes (Other)
  Sender: FDA-Public Use
  Company Number: CN-JNJFOC-20180803290

PATIENT
  Age: 70 Year
  Sex: Male
  Weight: 79 kg

DRUGS (7)
  1. LEGALON [Concomitant]
     Active Substance: DIETARY SUPPLEMENT\HERBALS\MILK THISTLE
     Indication: PROPHYLAXIS
     Route: 065
  2. LAMIVUDINE. [Concomitant]
     Active Substance: LAMIVUDINE
     Indication: HEPATITIS B
     Route: 065
  3. PREDNISON [Concomitant]
     Active Substance: PREDNISONE
     Route: 065
  4. PREDNISON [Concomitant]
     Active Substance: PREDNISONE
     Route: 065
     Dates: start: 20180801
  5. ZYTIGA [Suspect]
     Active Substance: ABIRATERONE ACETATE
     Indication: PROSTATE CANCER METASTATIC
     Route: 048
     Dates: start: 201801
  6. ZYTIGA [Suspect]
     Active Substance: ABIRATERONE ACETATE
     Route: 048
     Dates: start: 20180801
  7. INSULIN [Concomitant]
     Active Substance: INSULIN NOS
     Route: 065

REACTIONS (11)
  - Diabetes mellitus [Unknown]
  - Fatigue [Unknown]
  - Oedema [Unknown]
  - Decreased appetite [Unknown]
  - Cancer pain [Unknown]
  - Decreased immune responsiveness [Unknown]
  - Abdominal distension [Unknown]
  - Lung disorder [Unknown]
  - Hypertension [Unknown]
  - Dyspepsia [Unknown]
  - Abdominal discomfort [Unknown]

NARRATIVE: CASE EVENT DATE: 2018
